FAERS Safety Report 8818786 (Version 1)
Quarter: 2012Q4

REPORT INFORMATION
  Report Type: 
  Country: US (occurrence: US)
  Receive Date: 20121001
  Receipt Date: 20121001
  Transmission Date: 20130627
  Serious: Yes (Death, Other)
  Sender: FDA-Public Use
  Company Number: US-ROCHE-1129545

PATIENT
  Sex: Female

DRUGS (1)
  1. HERCEPTIN [Suspect]
     Indication: BREAST CANCER FEMALE
     Route: 065
     Dates: start: 200305

REACTIONS (7)
  - Death [Fatal]
  - Ejection fraction decreased [Unknown]
  - Lymphoedema [Unknown]
  - Lymphoedema [Unknown]
  - Metastases to liver [Unknown]
  - Metastases to bone [Unknown]
  - Metastases to lung [Unknown]
